FAERS Safety Report 8920919 (Version 2)
Quarter: 2013Q1

REPORT INFORMATION
  Report Type: Spontaneous
  Country: US (occurrence: US)
  Receive Date: 20121122
  Receipt Date: 20130114
  Transmission Date: 20140127
  Serious: No
  Sender: FDA-Public Use
  Company Number: US-PFIZER INC-2012292214

PATIENT
  Sex: 0

DRUGS (2)
  1. LIPITOR [Suspect]
     Dosage: 10 MG, UNK
  2. NORVASC [Suspect]
     Dosage: 5 MG, UNK

REACTIONS (2)
  - Drug hypersensitivity [Unknown]
  - Ear disorder [Unknown]
